FAERS Safety Report 4699128-0 (Version None)
Quarter: 2005Q2

REPORT INFORMATION
  Report Type: 
  Country: None (occurrence: None)
  Receive Date: 20050624
  Receipt Date: 20050615
  Transmission Date: 20051028
  Serious: Yes (Other)
  Sender: FDA-Public Use
  Company Number: 200515063US

PATIENT
  Sex: Female
  Weight: 57.2 kg

DRUGS (9)
  1. LANTUS [Suspect]
     Indication: DIABETES MELLITUS INSULIN-DEPENDENT
     Dosage: DOSE UNIT: UNITS
     Dates: start: 20010101
  2. OPTICLIK (INSULIN INJECTION PEN) [Suspect]
     Indication: DIABETES MELLITUS INSULIN-DEPENDENT
     Dosage: DOSE: UNK
     Dates: start: 20050101
  3. HUMALOG [Concomitant]
     Indication: DIABETES MELLITUS INSULIN-DEPENDENT
     Dosage: DOSE: UNKNOWN
  4. ZOCOR [Concomitant]
     Indication: BLOOD CHOLESTEROL INCREASED
     Dosage: DOSE: UNKNOWN
  5. ZYRTEC [Concomitant]
     Indication: HYPERSENSITIVITY
     Dosage: DOSE: UNKNOWN
  6. LEVOTHYROXINE [Concomitant]
     Indication: HYPOTHYROIDISM
     Dosage: DOSE: UNKNOWN
  7. HYDROCHLOROTHIAZIDE [Concomitant]
     Indication: HYPERTENSION
     Dosage: DOSE: UNKNOWN
  8. COSOPT [Concomitant]
     Indication: GLAUCOMA
     Dosage: DOSE: UNKNOWN
  9. LISINOPRIL [Concomitant]
     Indication: HYPERTENSION
     Dosage: DOSE: UNKNOWN

REACTIONS (4)
  - BLOOD GLUCOSE INCREASED [None]
  - DEPRESSED LEVEL OF CONSCIOUSNESS [None]
  - HYPERHIDROSIS [None]
  - HYPOGLYCAEMIA [None]
